FAERS Safety Report 12758719 (Version 3)
Quarter: 2016Q4

REPORT INFORMATION
  Report Type: Spontaneous
  Country: JP (occurrence: JP)
  Receive Date: 20160919
  Receipt Date: 20161031
  Transmission Date: 20170207
  Serious: Yes (Death, Other)
  Sender: FDA-Public Use
  Company Number: JP-PFIZER INC-2016433363

PATIENT
  Age: 68 Year
  Sex: Female
  Weight: 36 kg

DRUGS (4)
  1. FOSPHENYTOIN SODIUM. [Suspect]
     Active Substance: FOSPHENYTOIN SODIUM
     Indication: EPILEPSY
     Dosage: 750 MG, 1 D
     Route: 042
     Dates: start: 20160907, end: 20160909
  2. CERCINE [Concomitant]
     Active Substance: DIAZEPAM
     Indication: EPILEPSY
     Dosage: 2.5 MG, 1 D
     Route: 042
     Dates: start: 20160908, end: 20160908
  3. PRIMPERAN [Concomitant]
     Active Substance: METOCLOPRAMIDE HYDROCHLORIDE
     Indication: NAUSEA
     Dosage: 10 MG, 1 D
     Route: 042
     Dates: start: 20160907, end: 20160907
  4. CERCINE [Concomitant]
     Active Substance: DIAZEPAM
     Dosage: 5 MG, 1 D
     Route: 042
     Dates: start: 20160909, end: 20160909

REACTIONS (12)
  - Nystagmus [Recovered/Resolved]
  - Toxicity to various agents [Unknown]
  - Speech disorder [Unknown]
  - Neoplasm malignant [Fatal]
  - Rhabdomyolysis [Recovered/Resolved]
  - Peripheral coldness [Unknown]
  - Psychomotor hyperactivity [Unknown]
  - Productive cough [Unknown]
  - Cyanosis [Unknown]
  - Condition aggravated [Fatal]
  - Colon cancer [Fatal]
  - Hypocalcaemia [Unknown]

NARRATIVE: CASE EVENT DATE: 20160908
